FAERS Safety Report 7519109-9 (Version None)
Quarter: 2011Q2

REPORT INFORMATION
  Report Type: 
  Country: None (occurrence: None)
  Receive Date: 20110523
  Receipt Date: 20110513
  Transmission Date: 20111010
  Serious: Yes (Other)
  Sender: FDA-Public Use
  Company Number: 2011SP022588

PATIENT
  Age: 2 Year
  Sex: Female

DRUGS (1)
  1. CELESTONE [Suspect]
     Indication: BRONCHITIS
     Dates: start: 20070101

REACTIONS (2)
  - FACE OEDEMA [None]
  - HAEMATOMA [None]
